FAERS Safety Report 10874062 (Version 1)
Quarter: 2015Q1

REPORT INFORMATION
  Report Type: Spontaneous
  Country: US (occurrence: None)
  Receive Date: 20150223
  Receipt Date: 20150223
  Transmission Date: 20150721
  Serious: Yes (Life-Threatening)
  Sender: FDA-Public Use
  Company Number: None

PATIENT
  Age: 72 Year
  Sex: Female
  Weight: 132 kg

DRUGS (1)
  1. VANCOMYCIN [Suspect]
     Active Substance: VANCOMYCIN
     Indication: UROSEPSIS
     Route: 042
     Dates: start: 20141126, end: 20141126

REACTIONS (3)
  - Hypotension [None]
  - Respiratory depression [None]
  - Anaphylactic reaction [None]

NARRATIVE: CASE EVENT DATE: 20141126
